FAERS Safety Report 6056472-2 (Version None)
Quarter: 2009Q1

REPORT INFORMATION
  Report Type: 
  Country: None (occurrence: None)
  Receive Date: 20090129
  Receipt Date: 20090119
  Transmission Date: 20090719
  Serious: Yes (Other)
  Sender: FDA-Public Use
  Company Number: PHHY2009MX02221

PATIENT
  Age: 81 Year
  Sex: Male

DRUGS (2)
  1. DIOVAN [Suspect]
     Indication: HYPERTENSION
     Dosage: 160 MG, BID
     Route: 048
     Dates: start: 20070101
  2. ENALAPRIL MALEATE [Concomitant]

REACTIONS (1)
  - DIALYSIS [None]
